FAERS Safety Report 10722781 (Version 4)
Quarter: 2015Q1

REPORT INFORMATION
  Report Type: Spontaneous
  Country: US (occurrence: US)
  Receive Date: 20150120
  Receipt Date: 20150319
  Transmission Date: 20150721
  Serious: Yes (Other)
  Sender: FDA-Public Use
  Company Number: US-DRREDDYS-USA/USA/15/0045437

PATIENT
  Age: 37 Year
  Sex: Female

DRUGS (1)
  1. ZENATANE [Suspect]
     Active Substance: ISOTRETINOIN
     Indication: PRODUCT USED FOR UNKNOWN INDICATION
     Dates: start: 20140310, end: 20150110

REACTIONS (2)
  - Exposure during pregnancy [Unknown]
  - Selective abortion [Unknown]

NARRATIVE: CASE EVENT DATE: 20150121
